FAERS Safety Report 12850339 (Version 1)
Quarter: 2016Q4

REPORT INFORMATION
  Report Type: Spontaneous
  Country: GB (occurrence: GB)
  Receive Date: 20161014
  Receipt Date: 20161014
  Transmission Date: 20170207
  Serious: Yes (Other)
  Sender: FDA-Public Use
  Company Number: GB-ASTRAZENECA-2016SF06737

PATIENT
  Age: 35 Year
  Sex: Female

DRUGS (9)
  1. DAPAGLIFLOZIN [Suspect]
     Active Substance: DAPAGLIFLOZIN
     Indication: TYPE 2 DIABETES MELLITUS
     Route: 048
     Dates: start: 20160913
  2. FOLIC ACID. [Concomitant]
     Active Substance: FOLIC ACID
  3. METHYLDOPA. [Concomitant]
     Active Substance: METHYLDOPA
  4. FERROUS SULFATE. [Concomitant]
     Active Substance: FERROUS SULFATE
  5. PARACETAMOL [Concomitant]
     Active Substance: ACETAMINOPHEN
  6. METFORMIN [Concomitant]
     Active Substance: METFORMIN HYDROCHLORIDE
  7. PROCHLORPERAZINE. [Concomitant]
     Active Substance: PROCHLORPERAZINE
  8. GLICLAZIDE [Concomitant]
     Active Substance: GLICLAZIDE
  9. PREGABALIN. [Concomitant]
     Active Substance: PREGABALIN

REACTIONS (2)
  - Enuresis [Not Recovered/Not Resolved]
  - Nocturia [Not Recovered/Not Resolved]
